FAERS Safety Report 15518395 (Version 2)
Quarter: 2018Q4

REPORT INFORMATION
  Report Type: Report from Study
  Country: IT (occurrence: IT)
  Receive Date: 20181017
  Receipt Date: 20181031
  Transmission Date: 20190205
  Serious: Yes (Hospitalization)
  Sender: FDA-Public Use
  Company Number: IT-MYLANLABS-2018M1077609

PATIENT
  Age: 89 Year
  Sex: Male

DRUGS (1)
  1. METFORMIN [Suspect]
     Active Substance: METFORMIN HYDROCHLORIDE
     Indication: PRODUCT USED FOR UNKNOWN INDICATION
     Dosage: UNK
     Route: 048

REACTIONS (6)
  - Drug level increased [Recovering/Resolving]
  - Decreased appetite [Recovering/Resolving]
  - Vomiting [Recovering/Resolving]
  - Sopor [Recovering/Resolving]
  - Adverse drug reaction [Recovering/Resolving]
  - Metabolic acidosis [Recovering/Resolving]

NARRATIVE: CASE EVENT DATE: 20180515
